FAERS Safety Report 8321994-8 (Version None)
Quarter: 2012Q2

REPORT INFORMATION
  Report Type: 
  Country: None (occurrence: None)
  Receive Date: 20120430
  Receipt Date: 20120424
  Transmission Date: 20120825
  Serious: No
  Sender: FDA-Public Use
  Company Number: US-PFIZER INC-2012102140

PATIENT
  Sex: Female
  Weight: 109 kg

DRUGS (1)
  1. PRISTIQ [Suspect]
     Indication: DEPRESSION
     Dosage: 100 MG, DAILY
     Route: 048
     Dates: start: 20110101

REACTIONS (4)
  - PAIN [None]
  - DEPRESSION [None]
  - DIZZINESS [None]
  - MUSCULOSKELETAL DISCOMFORT [None]
